FAERS Safety Report 23193628 (Version 1)
Quarter: 2023Q4

REPORT INFORMATION
  Report Type: Spontaneous
  Country: US (occurrence: US)
  Receive Date: 20231116
  Receipt Date: 20231116
  Transmission Date: 20240110
  Serious: No
  Sender: FDA-Public Use
  Company Number: US-Teikoku Pharma USA-TPU2023-00554

PATIENT
  Sex: Female
  Weight: 39.498 kg

DRUGS (3)
  1. LIDODERM [Suspect]
     Active Substance: LIDOCAINE
     Indication: Pain
     Dosage: UP TO 3 PATCHES A DAY
     Route: 061
     Dates: start: 2003
  2. LIDOCAINE PATCH [Suspect]
     Active Substance: LIDOCAINE
     Indication: Pain
     Dates: start: 2003
  3. FLECTOR [Concomitant]
     Active Substance: DICLOFENAC EPOLAMINE

REACTIONS (10)
  - Product dose omission issue [Not Recovered/Not Resolved]
  - Road traffic accident [Unknown]
  - Road traffic accident [Unknown]
  - Neck surgery [Unknown]
  - Foot operation [Unknown]
  - Implant site vesicles [Recovered/Resolved]
  - Mobility decreased [Not Recovered/Not Resolved]
  - Neuromuscular blockade [Unknown]
  - Weight decreased [Not Recovered/Not Resolved]
  - Drug ineffective for unapproved indication [Unknown]

NARRATIVE: CASE EVENT DATE: 20100101
